FAERS Safety Report 14841955 (Version 6)
Quarter: 2019Q3

REPORT INFORMATION
  Report Type: Spontaneous
  Country: JP (occurrence: JP)
  Receive Date: 20180503
  Receipt Date: 20190802
  Transmission Date: 20191004
  Serious: Yes (Hospitalization)
  Sender: FDA-Public Use
  Company Number: JP-JNJFOC-20180500326

PATIENT
  Age: 68 Year
  Sex: Female
  Weight: 85 kg

DRUGS (30)
  1. CRESTOR [Concomitant]
     Active Substance: ROSUVASTATIN CALCIUM
     Route: 048
     Dates: start: 20170113
  2. HUMALOG [Concomitant]
     Active Substance: INSULIN LISPRO
     Route: 051
     Dates: start: 20171216, end: 20180220
  3. LANTUS XR [Concomitant]
     Active Substance: INSULIN GLARGINE
     Route: 051
     Dates: start: 20171216, end: 20180220
  4. MAGNESIUM OXIDE. [Concomitant]
     Active Substance: MAGNESIUM OXIDE
     Dosage: STARTED BEFORE 2009
     Route: 048
  5. LANSOPRAZOLE. [Concomitant]
     Active Substance: LANSOPRAZOLE
     Route: 048
     Dates: start: 20121005
  6. METGLUCO [Concomitant]
     Active Substance: METFORMIN HYDROCHLORIDE
     Indication: TYPE 2 DIABETES MELLITUS
     Route: 048
     Dates: start: 20140606, end: 20170622
  7. PIOGLITAZONE. [Concomitant]
     Active Substance: PIOGLITAZONE
     Indication: TYPE 2 DIABETES MELLITUS
     Route: 048
     Dates: start: 20140621, end: 20170622
  8. SENNOSIDE [Concomitant]
     Active Substance: SENNOSIDES
     Route: 048
     Dates: start: 20141003
  9. HUMALOG [Concomitant]
     Active Substance: INSULIN LISPRO
     Indication: TYPE 2 DIABETES MELLITUS
     Route: 051
     Dates: start: 20160819, end: 20161215
  10. LANTUS XR [Concomitant]
     Active Substance: INSULIN GLARGINE
     Route: 051
     Dates: start: 20170916, end: 20171215
  11. CRESTOR [Concomitant]
     Active Substance: ROSUVASTATIN CALCIUM
     Route: 048
     Dates: start: 20101126, end: 20170212
  12. HUMALOG MIX [Concomitant]
     Active Substance: INSULIN LISPRO
     Route: 051
     Dates: start: 20160305, end: 20160818
  13. HUMALOG [Concomitant]
     Active Substance: INSULIN LISPRO
     Route: 051
     Dates: start: 20180221
  14. TENELIA [Concomitant]
     Active Substance: TENELIGLIPTIN
     Route: 048
  15. NIFEDIPINE. [Concomitant]
     Active Substance: NIFEDIPINE
     Route: 048
     Dates: start: 20160610, end: 20161117
  16. NIFEDIPINE. [Concomitant]
     Active Substance: NIFEDIPINE
     Route: 048
     Dates: start: 20161118
  17. RELVAR [Concomitant]
     Active Substance: FLUTICASONE FUROATE\VILANTEROL TRIFENATATE
     Route: 055
     Dates: start: 20171220, end: 20180123
  18. SHOSAIKOTO                         /08000001/ [Concomitant]
     Dosage: 3 GRAM, BID
     Route: 048
  19. CANAGLIFLOZIN [Suspect]
     Active Substance: CANAGLIFLOZIN
     Indication: TYPE 2 DIABETES MELLITUS
     Route: 048
     Dates: start: 20150703, end: 20180320
  20. BAYASPIRIN [Concomitant]
     Active Substance: ASPIRIN
     Dosage: STARTED BEFORE 2009
     Route: 048
  21. PRANLUKAST [Concomitant]
     Active Substance: PRANLUKAST
     Dosage: STARTED BEFORE 2009
     Route: 048
  22. VALSARTAN. [Concomitant]
     Active Substance: VALSARTAN
     Route: 048
     Dates: start: 20160205
  23. NIFEDIPINE. [Concomitant]
     Active Substance: NIFEDIPINE
     Route: 048
     Dates: start: 20150703, end: 20151105
  24. HUMALOG [Concomitant]
     Active Substance: INSULIN LISPRO
     Dosage: 19 PER DAY, THRICE A DAY
     Route: 051
     Dates: start: 20161216, end: 20170331
  25. LANTUS XR [Concomitant]
     Active Substance: INSULIN GLARGINE
     Indication: TYPE 2 DIABETES MELLITUS
     Route: 051
     Dates: start: 20170819, end: 20170915
  26. LANTUS XR [Concomitant]
     Active Substance: INSULIN GLARGINE
     Route: 051
     Dates: start: 20180221
  27. HUMALOG MIX [Concomitant]
     Active Substance: INSULIN LISPRO
     Indication: TYPE 2 DIABETES MELLITUS
     Dosage: 31/DAY
     Route: 051
     Dates: start: 20140606, end: 20160304
  28. NIFEDIPINE. [Concomitant]
     Active Substance: NIFEDIPINE
     Route: 048
     Dates: start: 20151106, end: 20160609
  29. HUMALOG [Concomitant]
     Active Substance: INSULIN LISPRO
     Dosage: 16 PER DAY, THRICE A DAY
     Route: 051
     Dates: start: 20170401, end: 20171215
  30. PREDNISOLONE. [Concomitant]
     Active Substance: PREDNISOLONE
     Route: 048
     Dates: start: 20171220, end: 20171223

REACTIONS (3)
  - Palpitations [Recovering/Resolving]
  - Arthralgia [Recovering/Resolving]
  - Atrial fibrillation [Recovering/Resolving]

NARRATIVE: CASE EVENT DATE: 20160621
